FAERS Safety Report 26105331 (Version 1)
Quarter: 2025Q4

REPORT INFORMATION
  Report Type: Spontaneous
  Country: US (occurrence: US)
  Receive Date: 20251201
  Receipt Date: 20251201
  Transmission Date: 20260118
  Serious: Yes (Hospitalization, Other)
  Sender: PHARMOBEDIENT CONSULTING, LLC
  Company Number: US-Pharmobedient-000550

PATIENT
  Age: 34 Year
  Sex: Female

DRUGS (2)
  1. CABERGOLINE [Suspect]
     Active Substance: CABERGOLINE
     Indication: Acromegaly
     Dates: start: 2020, end: 2024
  2. LANREOTIDE [Concomitant]
     Active Substance: LANREOTIDE
     Indication: Acromegaly

REACTIONS (4)
  - Impulse-control disorder [Recovered/Resolved]
  - Adrenocortical insufficiency acute [Recovering/Resolving]
  - Anxiety [Recovering/Resolving]
  - Gambling disorder [Recovered/Resolved]

NARRATIVE: CASE EVENT DATE: 20240101
